FAERS Safety Report 19118292 (Version 1)
Quarter: 2021Q2

REPORT INFORMATION
  Report Type: Spontaneous
  Country: AT (occurrence: AT)
  Receive Date: 20210410
  Receipt Date: 20210410
  Transmission Date: 20210717
  Serious: Yes (Death, Other)
  Sender: FDA-Public Use
  Company Number: AT-SHILPA MEDICARE LIMITED-SML-AT-2021-00396

PATIENT

DRUGS (4)
  1. DOCETAXEL, UNKNOWN [Suspect]
     Active Substance: DOCETAXEL
     Indication: ORAL CAVITY CANCER METASTATIC
     Dosage: UNK
     Route: 065
  2. FLUOROURACIL. [Suspect]
     Active Substance: FLUOROURACIL
     Indication: ORAL CAVITY CANCER METASTATIC
     Dosage: UNK
     Route: 065
  3. GEMCITABINE, UNKNOWN [Suspect]
     Active Substance: GEMCITABINE
     Indication: ORAL CAVITY CANCER METASTATIC
     Dosage: UNK
     Route: 065
  4. CISPLATIN. [Suspect]
     Active Substance: CISPLATIN
     Indication: ORAL CAVITY CANCER METASTATIC
     Dosage: UNK
     Route: 065

REACTIONS (4)
  - Death [Fatal]
  - Malignant neoplasm progression [Unknown]
  - Oral cavity cancer metastatic [Unknown]
  - Hepatitis B [Unknown]

NARRATIVE: CASE EVENT DATE: 201807
